FAERS Safety Report 17578428 (Version 1)
Quarter: 2020Q1

REPORT INFORMATION
  Report Type: Spontaneous
  Country: US (occurrence: US)
  Receive Date: 20200324
  Receipt Date: 20200324
  Transmission Date: 20200409
  Serious: No
  Sender: FDA-Public Use
  Company Number: US-GILEAD-2020-0456404

PATIENT
  Age: 60 Year
  Sex: Male

DRUGS (9)
  1. ZINC. [Concomitant]
     Active Substance: ZINC
  2. ASPIRIN 81 [Concomitant]
     Active Substance: ASPIRIN
  3. VITAMIN B12 [VITAMIN B12 NOS] [Concomitant]
     Active Substance: CYANOCOBALAMIN
  4. GENVOYA [Suspect]
     Active Substance: COBICISTAT\ELVITEGRAVIR\EMTRICITABINE\TENOFOVIR ALAFENAMIDE FUMARATE
     Indication: HIV INFECTION
     Dosage: 1 DOSAGE FORM (150/150/200/10 MG), QD
     Route: 048
     Dates: start: 201907
  5. MULTIVIT [VITAMINS NOS] [Concomitant]
  6. BETA GLUCAN [Concomitant]
     Active Substance: BETA GLUCAN
  7. NIACIN. [Concomitant]
     Active Substance: NIACIN
  8. METOPROLOL TARTRATE. [Concomitant]
     Active Substance: METOPROLOL TARTRATE
  9. LUTEIN + [Concomitant]

REACTIONS (1)
  - Heart rate increased [Unknown]

NARRATIVE: CASE EVENT DATE: 20200308
